FAERS Safety Report 16380018 (Version 1)
Quarter: 2019Q2

REPORT INFORMATION
  Report Type: Spontaneous
  Country: FR (occurrence: FR)
  Receive Date: 20190531
  Receipt Date: 20190531
  Transmission Date: 20190711
  Serious: Yes (Death, Hospitalization, Other)
  Sender: FDA-Public Use
  Company Number: FR-BRISTOL-MYERS SQUIBB COMPANY-BMS-2019-051319

PATIENT
  Age: 73 Year
  Sex: Male
  Weight: 69.8 kg

DRUGS (1)
  1. OPDIVO [Suspect]
     Active Substance: NIVOLUMAB
     Indication: METASTATIC MALIGNANT MELANOMA
     Dosage: 3 MILLIGRAM/KILOGRAM
     Route: 042
     Dates: start: 201610, end: 201611

REACTIONS (3)
  - Autoimmune haemolytic anaemia [Recovered/Resolved]
  - Kidney transplant rejection [Recovered/Resolved with Sequelae]
  - Malignant neoplasm progression [Fatal]

NARRATIVE: CASE EVENT DATE: 201612
